FAERS Safety Report 20115983 (Version 1)
Quarter: 2021Q4

REPORT INFORMATION
  Report Type: Report from Study
  Country: DE (occurrence: DE)
  Receive Date: 20211126
  Receipt Date: 20211126
  Transmission Date: 20220303
  Serious: Yes (Hospitalization)
  Sender: FDA-Public Use
  Company Number: DE-KYOWAKIRIN-2021BKK019559

PATIENT

DRUGS (5)
  1. BUROSUMAB [Suspect]
     Active Substance: BUROSUMAB
     Indication: Hereditary hypophosphataemic rickets
     Dosage: 40 MG
     Route: 058
     Dates: start: 20211028, end: 20211028
  2. BUROSUMAB [Suspect]
     Active Substance: BUROSUMAB
     Dosage: 40 MG
     Route: 058
     Dates: start: 20211111
  3. BUROSUMAB [Suspect]
     Active Substance: BUROSUMAB
     Dosage: 40 MG
     Route: 058
     Dates: start: 20211111
  4. BUROSUMAB [Suspect]
     Active Substance: BUROSUMAB
     Dosage: 10 MG
     Route: 058
     Dates: start: 20200416
  5. CHOLECALCIFEROL [Concomitant]
     Active Substance: CHOLECALCIFEROL
     Indication: Product used for unknown indication
     Dosage: 1X DAILY 1000 IU
     Route: 048
     Dates: start: 20200609

REACTIONS (5)
  - Renal pain [Recovered/Resolved]
  - Paraesthesia [Recovered/Resolved]
  - Pyrexia [Recovered/Resolved]
  - Diarrhoea [Recovered/Resolved]
  - Headache [Recovered/Resolved]

NARRATIVE: CASE EVENT DATE: 20211029
